FAERS Safety Report 18372089 (Version 5)
Quarter: 2021Q1

REPORT INFORMATION
  Report Type: Report from Study
  Country: US (occurrence: US)
  Receive Date: 20201012
  Receipt Date: 20210218
  Transmission Date: 20210419
  Serious: No
  Sender: FDA-Public Use
  Company Number: NVSC2020US264734

PATIENT
  Age: 59 Year
  Sex: Female

DRUGS (2)
  1. GLATOPA [Suspect]
     Active Substance: GLATIRAMER ACETATE
     Indication: MULTIPLE SCLEROSIS
     Dosage: 20 MG, ONCE2SDO (TWICE A DAY)
     Route: 058
     Dates: start: 20200928
  2. GLATOPA [Suspect]
     Active Substance: GLATIRAMER ACETATE
     Dosage: 40 MG, TIW
     Route: 065

REACTIONS (7)
  - Pain [Unknown]
  - Injection site pain [Unknown]
  - Lipoatrophy [Unknown]
  - Crying [Unknown]
  - Burning sensation [Unknown]
  - Injection site mass [Unknown]
  - Contusion [Recovered/Resolved]

NARRATIVE: CASE EVENT DATE: 20200928
